FAERS Safety Report 7311500-9 (Version None)
Quarter: 2011Q1

REPORT INFORMATION
  Report Type: 
  Country: None (occurrence: None)
  Receive Date: 20110224
  Receipt Date: 20110215
  Transmission Date: 20110831
  Serious: Yes (Hospitalization)
  Sender: FDA-Public Use
  Company Number: PHHO2010CZ06341

PATIENT
  Sex: Male
  Weight: 75 kg

DRUGS (6)
  1. BLINDED ENALAPRIL [Suspect]
     Dosage: CODE NOT BROKEN
     Route: 048
     Dates: start: 20091021, end: 20100423
  2. ACE INHIBITOR NOS [Suspect]
  3. ALISKIREN [Suspect]
     Indication: CARDIAC FAILURE
  4. BLINDED ALISKIREN [Suspect]
     Dosage: CODE NOT BROKEN
     Route: 048
     Dates: start: 20091021, end: 20100423
  5. BLINDED NO TREATMENT RECEIVED [Suspect]
     Dosage: CODE NOT BROKEN
     Route: 048
     Dates: start: 20091021, end: 20100423
  6. COMPARATOR ENALAPRIL [Suspect]
     Indication: CARDIAC FAILURE

REACTIONS (3)
  - RENAL FAILURE CHRONIC [None]
  - RENAL ARTERY STENOSIS [None]
  - VERTIGO [None]
